FAERS Safety Report 6587778-6 (Version None)
Quarter: 2010Q1

REPORT INFORMATION
  Report Type: 
  Country: None (occurrence: None)
  Receive Date: 20100218
  Receipt Date: 20100209
  Transmission Date: 20100710
  Serious: Yes (Other)
  Sender: FDA-Public Use
  Company Number: US-MYLANLABS-2010S1002132

PATIENT
  Age: 14 Year
  Sex: Male
  Weight: 56.7 kg

DRUGS (5)
  1. AMNESTEEM [Suspect]
     Indication: ACNE
     Route: 048
     Dates: start: 20091101, end: 20091201
  2. AMNESTEEM [Suspect]
     Route: 048
     Dates: start: 20091201, end: 20100101
  3. AMNESTEEM [Suspect]
     Route: 048
     Dates: start: 20100101, end: 20100201
  4. ALBUTEROL [Concomitant]
     Indication: ASTHMA
     Route: 055
  5. FLOVENT [Concomitant]
     Indication: ASTHMA
     Route: 055

REACTIONS (6)
  - ARTHRALGIA [None]
  - ASTHENIA [None]
  - DIZZINESS [None]
  - FATIGUE [None]
  - LUPUS-LIKE SYNDROME [None]
  - MYALGIA [None]
